FAERS Safety Report 8395985-5 (Version None)
Quarter: 2012Q2

REPORT INFORMATION
  Report Type: 
  Country: None (occurrence: None)
  Receive Date: 20120530
  Receipt Date: 20120522
  Transmission Date: 20120825
  Serious: Yes (Other)
  Sender: FDA-Public Use
  Company Number: AR-ROCHE-1072725

PATIENT
  Sex: Male

DRUGS (1)
  1. LUCENTIS [Suspect]
     Indication: MACULOPATHY
     Dosage: RECEIVED TOTAL OF 4 AMPOULES
     Route: 050
     Dates: start: 20110501

REACTIONS (6)
  - DRUG INEFFECTIVE [None]
  - MACULOPATHY [None]
  - EYE INJURY [None]
  - VITREOUS FLOATERS [None]
  - CATARACT [None]
  - VISUAL IMPAIRMENT [None]
